FAERS Safety Report 6591069-7 (Version None)
Quarter: 2010Q1

REPORT INFORMATION
  Report Type: 
  Country: None (occurrence: None)
  Receive Date: 20100219
  Receipt Date: 20100209
  Transmission Date: 20100710
  Serious: Yes (Other)
  Sender: FDA-Public Use
  Company Number: US-BAYER-200940212NA

PATIENT
  Age: 88 Year
  Sex: Female

DRUGS (2)
  1. ULTRAVIST (PHARMACY BULK) [Suspect]
     Indication: COMPUTERISED TOMOGRAM ABDOMEN
     Dosage: AS USED: 125 ML  UNIT DOSE: 500 ML
     Route: 042
     Dates: start: 20091118, end: 20091118
  2. ORAL CONTRAST MEDIA [Concomitant]
     Indication: COMPUTERISED TOMOGRAM ABDOMEN
     Route: 048
     Dates: start: 20091118, end: 20091118

REACTIONS (2)
  - DYSPNOEA [None]
  - HEART RATE INCREASED [None]
